FAERS Safety Report 20189812 (Version 1)
Quarter: 2021Q4

REPORT INFORMATION
  Report Type: Report from Study
  Country: US (occurrence: US)
  Receive Date: 20211215
  Receipt Date: 20211215
  Transmission Date: 20220303
  Serious: No
  Sender: FDA-Public Use
  Company Number: US-KYOWAKIRIN-2021BKK020809

PATIENT

DRUGS (2)
  1. CRYSVITA [Suspect]
     Active Substance: BUROSUMAB-TWZA
     Indication: Hereditary hypophosphataemic rickets
     Dosage: 50 MG (30 MG AND 20 MG), EVERY 4 WEEKS
     Route: 058
     Dates: start: 20180703
  2. CRYSVITA [Suspect]
     Active Substance: BUROSUMAB-TWZA
     Indication: Hereditary hypophosphataemic rickets
     Dosage: 50 MG (20 MG AND 30 MG), EVERY 4 WEEKS
     Route: 058
     Dates: start: 20180703

REACTIONS (1)
  - Peripheral swelling [Recovered/Resolved]
